FAERS Safety Report 21410176 (Version 1)
Quarter: 2022Q4

REPORT INFORMATION
  Report Type: Report from Study
  Country: US (occurrence: US)
  Receive Date: 20221005
  Receipt Date: 20221005
  Transmission Date: 20230112
  Serious: No
  Sender: FDA-Public Use
  Company Number: US-ABBVIE-4136045

PATIENT
  Age: 50 Year
  Sex: Female

DRUGS (1)
  1. GLECAPREVIR\PIBRENTASVIR [Suspect]
     Active Substance: GLECAPREVIR\PIBRENTASVIR
     Indication: Chronic hepatitis C
     Dosage: 100/40 MG
     Route: 048
     Dates: start: 20220908, end: 20220918

REACTIONS (3)
  - Drug hypersensitivity [Recovering/Resolving]
  - Skin burning sensation [Unknown]
  - Skin disorder [Unknown]

NARRATIVE: CASE EVENT DATE: 20220901
